FAERS Safety Report 16567801 (Version 9)
Quarter: 2020Q2

REPORT INFORMATION
  Report Type: Report from Study
  Country: CA (occurrence: CA)
  Receive Date: 20190712
  Receipt Date: 20200629
  Transmission Date: 20200713
  Serious: Yes (Hospitalization, Other)
  Sender: FDA-Public Use
  Company Number: CA-GLAXOSMITHKLINE-CA2019AMR122509

PATIENT
  Sex: Female

DRUGS (6)
  1. MEPOLIZUMAB [Suspect]
     Active Substance: MEPOLIZUMAB
     Dosage: 100 MG, Z
     Route: 042
     Dates: start: 20181228
  2. MEPOLIZUMAB [Suspect]
     Active Substance: MEPOLIZUMAB
     Indication: ASTHMA
     Dosage: 100 MG, Z,MONTHLY
     Route: 042
     Dates: start: 20181228
  3. MEPOLIZUMAB [Suspect]
     Active Substance: MEPOLIZUMAB
     Dosage: 100 MG, Z (MONTHLY)
     Route: 042
  4. MEPOLIZUMAB [Suspect]
     Active Substance: MEPOLIZUMAB
     Dosage: 100 MG, Z, MONTHLY
     Route: 042
  5. VENTOLIN [Suspect]
     Active Substance: ALBUTEROL SULFATE
     Indication: ASTHMA
     Dosage: UNK
  6. BREO ELLIPTA [Suspect]
     Active Substance: FLUTICASONE FUROATE\VILANTEROL TRIFENATATE
     Indication: ASTHMA
     Dosage: 1 DF, BID(200)
     Route: 055

REACTIONS (33)
  - Erythema [Unknown]
  - Dyspnoea [Recovering/Resolving]
  - Vomiting [Unknown]
  - Skin disorder [Unknown]
  - Dermatitis [Unknown]
  - Sleep disorder due to a general medical condition [Recovered/Resolved]
  - Pain [Unknown]
  - Blood pressure increased [Unknown]
  - Asthma [Recovered/Resolved]
  - Eczema [Unknown]
  - Bronchitis [Unknown]
  - Rosacea [Unknown]
  - Condition aggravated [Unknown]
  - Swelling face [Unknown]
  - Pyrexia [Unknown]
  - Infection [Unknown]
  - Urinary tract infection [Unknown]
  - Staphylococcal infection [Unknown]
  - Seizure [Unknown]
  - Blister [Unknown]
  - Abdominal pain upper [Unknown]
  - Malaise [Unknown]
  - Fatigue [Unknown]
  - Loss of personal independence in daily activities [Recovered/Resolved]
  - Wheezing [Recovered/Resolved]
  - Hypertension [Unknown]
  - Chest pain [Unknown]
  - Chills [Unknown]
  - Productive cough [Unknown]
  - Obesity [Unknown]
  - Pneumonia [Recovering/Resolving]
  - Urticaria [Unknown]
  - Lung infiltration [Unknown]
